FAERS Safety Report 19600082 (Version 3)
Quarter: 2021Q4

REPORT INFORMATION
  Report Type: Report from Study
  Country: US (occurrence: US)
  Receive Date: 20210723
  Receipt Date: 20211215
  Transmission Date: 20220303
  Serious: Yes (Hospitalization)
  Sender: FDA-Public Use
  Company Number: US-GLAXOSMITHKLINE-US2021GSK148040

PATIENT
  Age: 71 Year
  Sex: Female
  Weight: 90.703 kg

DRUGS (18)
  1. NIRAPARIB [Suspect]
     Active Substance: NIRAPARIB
     Indication: Ovarian cancer
     Dosage: 200 MG, QD
     Dates: start: 20210215
  2. NIRAPARIB [Suspect]
     Active Substance: NIRAPARIB
     Dosage: 100 MG, QD
     Dates: start: 20210523
  3. CARBOPLATIN [Suspect]
     Active Substance: CARBOPLATIN
     Indication: Ovarian cancer
     Dosage: 526 MG, Z-EVERY 21 DAYS
     Route: 042
     Dates: start: 20200720, end: 20200720
  4. CARBOPLATIN [Suspect]
     Active Substance: CARBOPLATIN
     Dosage: 545 MG, Z-EVERY 21 DAYS
     Route: 042
     Dates: start: 20210104, end: 20210104
  5. PACLITAXEL [Suspect]
     Active Substance: PACLITAXEL
     Indication: Ovarian cancer
     Dosage: 350 MG, Z-EVERY 21 DAYS
     Route: 042
     Dates: start: 20200720, end: 20200720
  6. PACLITAXEL [Suspect]
     Active Substance: PACLITAXEL
     Dosage: 336 MG, Z-EVERY 21 DAYS
     Route: 042
     Dates: start: 20210104, end: 20210104
  7. BEVACIZUMAB [Suspect]
     Active Substance: BEVACIZUMAB
     Indication: Ovarian cancer
     Dosage: 1370 MG, Z-EVERY 21 DAYS
     Route: 042
     Dates: start: 20200720, end: 20200720
  8. BEVACIZUMAB [Suspect]
     Active Substance: BEVACIZUMAB
     Dosage: 1320 MG, Z-EVERY 21 DAYS
     Route: 042
     Dates: start: 20210629, end: 20210629
  9. CIPROFLOXACIN [Concomitant]
     Active Substance: CIPROFLOXACIN
     Indication: Urinary tract infection
     Dosage: 500 MG, BID
     Route: 048
     Dates: start: 20210518, end: 20210524
  10. CIPROFLOXACIN [Concomitant]
     Active Substance: CIPROFLOXACIN
     Dosage: 200 MG, BID
     Route: 048
     Dates: start: 20210614, end: 20210619
  11. LEVOTHYROXINE [Concomitant]
     Active Substance: LEVOTHYROXINE
     Indication: Hypothyroidism
     Dosage: 112 UG, QD
     Route: 048
     Dates: start: 20210518
  12. SODIUM CHLORIDE [Concomitant]
     Active Substance: SODIUM CHLORIDE
     Indication: Urinary tract infection
     Dosage: 1000 ML, SINGLE
     Route: 042
     Dates: start: 20210611, end: 20210611
  13. NALDOL [Concomitant]
     Indication: Mental status changes
     Dosage: 5 MG, SINGLE
     Route: 030
     Dates: start: 20210611, end: 20210611
  14. ATIVAN [Concomitant]
     Active Substance: LORAZEPAM
     Indication: Mental status changes
     Dosage: 2 MG, SINGLE
     Route: 030
     Dates: start: 20210611, end: 20210611
  15. ATIVAN [Concomitant]
     Active Substance: LORAZEPAM
     Dosage: 5 MG, SINGLE
     Route: 030
     Dates: start: 20210611, end: 20210611
  16. TRIAMCINOLONE [Concomitant]
     Active Substance: TRIAMCINOLONE
     Indication: Pruritus
     Dosage: 0.1 %, PRN
     Route: 050
     Dates: start: 20210630
  17. CISPLATIN [Concomitant]
     Active Substance: CISPLATIN
     Dosage: UNK
  18. DOCETAXEL [Concomitant]
     Active Substance: DOCETAXEL
     Dosage: UNK

REACTIONS (1)
  - Delirium [Recovered/Resolved]

NARRATIVE: CASE EVENT DATE: 20210704
